FAERS Safety Report 8509252-X (Version None)
Quarter: 2012Q3

REPORT INFORMATION
  Report Type: 
  Country: None (occurrence: None)
  Receive Date: 20120713
  Receipt Date: 20120705
  Transmission Date: 20120928
  Serious: Yes (Other)
  Sender: FDA-Public Use
  Company Number: CA-ASTRAZENECA-2012SE43430

PATIENT
  Age: 66 Year
  Sex: Male

DRUGS (1)
  1. ZOLADEX [Suspect]
     Route: 058

REACTIONS (5)
  - MUSCLE SPASMS [None]
  - DIARRHOEA [None]
  - VOMITING [None]
  - HEADACHE [None]
  - NAUSEA [None]
